FAERS Safety Report 19789206 (Version 1)
Quarter: 2021Q3

REPORT INFORMATION
  Report Type: Spontaneous
  Country: IL (occurrence: IL)
  Receive Date: 20210905
  Receipt Date: 20210905
  Transmission Date: 20211014
  Serious: Yes (Other)
  Sender: FDA-Public Use
  Company Number: IL-STEMLINE THERAPEUTICS, INC.-2021ST000048

PATIENT
  Age: 87 Year
  Sex: Male

DRUGS (1)
  1. ELZONRIS [Suspect]
     Active Substance: TAGRAXOFUSP-ERZS
     Indication: BLASTIC PLASMACYTOID DENDRITIC CELL NEOPLASIA
     Route: 042
     Dates: start: 20210822, end: 20210825

REACTIONS (5)
  - Pyrexia [Unknown]
  - Hepatotoxicity [Recovering/Resolving]
  - Confusional state [Unknown]
  - Rash erythematous [Unknown]
  - Thrombocytopenia [Unknown]

NARRATIVE: CASE EVENT DATE: 20210826
